FAERS Safety Report 7513434-3 (Version None)
Quarter: 2011Q2

REPORT INFORMATION
  Report Type: 
  Country: None (occurrence: None)
  Receive Date: 20110531
  Receipt Date: 20110117
  Transmission Date: 20111010
  Serious: Yes (Hospitalization, Other)
  Sender: FDA-Public Use
  Company Number: US-BAYER-201031102NA

PATIENT
  Age: 26 Year
  Sex: Female
  Weight: 63.492 kg

DRUGS (6)
  1. YAZ [Suspect]
     Dosage: UNK
     Dates: start: 20080801, end: 20090501
  2. PROARNITINE [Concomitant]
  3. SPIRUTEC [Concomitant]
  4. YAZ [Suspect]
     Indication: PREMENSTRUAL SYNDROME
     Dosage: UNK UNK, UNK
     Route: 048
     Dates: start: 20090501, end: 20090901
  5. HYOSCYAMINE [Concomitant]
     Dosage: 0.125 MG/1 TAB 3 TIMES DAILY
     Route: 060
     Dates: start: 20090401
  6. TOPROL-XL [Concomitant]
     Dosage: 25 MG
     Route: 048

REACTIONS (14)
  - HYPERTENSION [None]
  - CHEST PAIN [None]
  - TACHYCARDIA [None]
  - HYPOTENSION [None]
  - POSTURAL ORTHOSTATIC TACHYCARDIA SYNDROME [None]
  - HEADACHE [None]
  - BACK PAIN [None]
  - CARDIOVASCULAR DISORDER [None]
  - ASTHENIA [None]
  - SYNCOPE [None]
  - PRESYNCOPE [None]
  - VERTIGO [None]
  - DIZZINESS [None]
  - HEART RATE INCREASED [None]
